FAERS Safety Report 6467540-5 (Version None)
Quarter: 2009Q4

REPORT INFORMATION
  Report Type: 
  Country: None (occurrence: None)
  Receive Date: 20091127
  Receipt Date: 20091112
  Transmission Date: 20100525
  Serious: Yes (Other)
  Sender: FDA-Public Use
  Company Number: 09-AUR-10196

PATIENT
  Age: 66 Year
  Sex: Male

DRUGS (5)
  1. AMIODARONE HCL [Suspect]
     Indication: VENTRICULAR TACHYCARDIA
     Dosage: 400 MG (ONCE IN A DAY), ORAL
     Route: 048
  2. BISOPROLOL FUMARATE [Suspect]
     Indication: VENTRICULAR TACHYCARDIA
  3. RAMIPRIL [Suspect]
     Indication: VENTRICULAR TACHYCARDIA
  4. MAGNESIUM [Suspect]
     Indication: VENTRICULAR TACHYCARDIA
     Dosage: INTRAVENOUS
     Route: 042
  5. MEXILETINE HYDROCHLORIDE [Suspect]
     Indication: VENTRICULAR TACHYCARDIA
     Dosage: 750 MG (ONCE IN A DAY)
     Route: 048

REACTIONS (2)
  - DRUG INEFFECTIVE [None]
  - VENTRICULAR TACHYCARDIA [None]
